FAERS Safety Report 11702829 (Version 1)
Quarter: 2015Q4

REPORT INFORMATION
  Report Type: Spontaneous
  Country: PT (occurrence: PT)
  Receive Date: 20151105
  Receipt Date: 20151105
  Transmission Date: 20160304
  Serious: Yes (Disabling)
  Sender: FDA-Public Use
  Company Number: PT-GLAXOSMITHKLINE-PT2015155147

PATIENT
  Sex: Male

DRUGS (6)
  1. HIDROCLOROTIAZIDA/IRBESARTAN [Concomitant]
     Dosage: DOSAGEM: 300 + 12.5 MG.
     Route: 048
  2. METFORMIN [Concomitant]
     Active Substance: METFORMIN HYDROCHLORIDE
     Dosage: 1000 MG, QD
     Route: 048
  3. HERBESSER SR [Concomitant]
     Route: 048
  4. SINTROM [Concomitant]
     Active Substance: ACENOCOUMAROL
     Route: 048
  5. ZEFFIX [Suspect]
     Active Substance: LAMIVUDINE
     Indication: HEPATITIS B
     Dosage: 100 MG, QD
     Route: 048
     Dates: start: 20131113, end: 20150720
  6. NEXAVAR [Concomitant]
     Active Substance: SORAFENIB
     Dosage: 200 MG, QD
     Route: 048
     Dates: start: 20141126

REACTIONS (3)
  - Thinking abnormal [Recovered/Resolved]
  - Nervousness [Recovered/Resolved]
  - Insomnia [Recovered/Resolved]

NARRATIVE: CASE EVENT DATE: 2014
